FAERS Safety Report 13642382 (Version 6)
Quarter: 2017Q4

REPORT INFORMATION
  Report Type: Spontaneous
  Country: US (occurrence: US)
  Receive Date: 20170612
  Receipt Date: 20171015
  Transmission Date: 20180320
  Serious: Yes (Hospitalization, Other)
  Sender: FDA-Public Use
  Company Number: US-CELGENEUS-USA-20170601072

PATIENT
  Age: 83 Year
  Sex: Male

DRUGS (1)
  1. REVLIMID [Suspect]
     Active Substance: LENALIDOMIDE
     Indication: PLASMA CELL MYELOMA RECURRENT
     Dosage: 10 MILLIGRAM
     Route: 048
     Dates: start: 20170411

REACTIONS (4)
  - Erythema [Unknown]
  - Rash [Recovered/Resolved]
  - Hypoacusis [Unknown]
  - Skin lesion [Unknown]

NARRATIVE: CASE EVENT DATE: 2017
